FAERS Safety Report 9567764 (Version 1)
Quarter: 2013Q3

REPORT INFORMATION
  Report Type: Spontaneous
  Country: US (occurrence: US)
  Receive Date: 20130930
  Receipt Date: 20130930
  Transmission Date: 20140515
  Serious: No
  Sender: FDA-Public Use
  Company Number: US-AMGEN-USASP2013023694

PATIENT
  Age: 51 Year
  Sex: Female
  Weight: 68.03 kg

DRUGS (9)
  1. ENBREL [Suspect]
     Indication: PRODUCT USED FOR UNKNOWN INDICATION
     Dosage: 50 MG, QWK
     Route: 058
  2. PLAQUENIL                          /00072602/ [Concomitant]
     Dosage: 200 MG, UNK
  3. AMBIEN [Concomitant]
     Dosage: 5 MG, UNK
  4. DIOVAN [Concomitant]
     Dosage: 40 MG, UNK
  5. TRAMADOL HCL [Concomitant]
     Dosage: 50 MG, UNK
  6. CITALOPRAM [Concomitant]
     Dosage: 40 MG, UNK
  7. ETODOLAC [Concomitant]
     Dosage: 300 MG, UNK
  8. ATORVASTATIN [Concomitant]
     Dosage: 10 MG, UNK
  9. FISH OIL [Concomitant]
     Dosage: UNK

REACTIONS (1)
  - Herpes zoster [Unknown]
